FAERS Safety Report 7980710-X (Version None)
Quarter: 2011Q4

REPORT INFORMATION
  Report Type: 
  Country: None (occurrence: None)
  Receive Date: 20111214
  Receipt Date: 20111207
  Transmission Date: 20120403
  Serious: Yes (Hospitalization)
  Sender: FDA-Public Use
  Company Number: JP-BAYER-2011-118005

PATIENT
  Age: 79 Year
  Sex: Female
  Weight: 48 kg

DRUGS (15)
  1. AZUCURENIN S [Concomitant]
     Dosage: DAILY DOSE 1.5 G
     Route: 048
     Dates: start: 20110909
  2. AMITRIPTYLINE HCL [Concomitant]
     Dosage: DAILY DOSE 20 MG
     Route: 048
     Dates: start: 20080930
  3. GASRICK D SAWAI [Concomitant]
     Dosage: DAILY DOSE 20 MG
     Route: 048
     Dates: start: 20061025
  4. TENORMIN [Concomitant]
     Dosage: DAILY DOSE 10 MG
     Route: 048
     Dates: start: 20070914
  5. ALENDRONATE SODIUM [Concomitant]
     Dosage: DAILY DOSE 35 MG
     Route: 048
     Dates: start: 20110516
  6. YOKUKAN-SAN [Concomitant]
     Dosage: DAILY DOSE 5 G
     Route: 048
     Dates: start: 20070701
  7. TRANEXAMIC ACID [Suspect]
     Dosage: DAILY DOSE 1500 MG
     Route: 048
     Dates: start: 20111115, end: 20111122
  8. URSODIOL [Concomitant]
     Dosage: DAILY DOSE 300 MG
     Route: 048
     Dates: start: 20060301
  9. SEDIEL [Concomitant]
     Dosage: DAILY DOSE 20 MG
     Route: 048
     Dates: start: 20080101
  10. TICLOPIDINE HCL [Concomitant]
     Dosage: DAILY DOSE 100 MG
     Route: 048
     Dates: start: 20071121
  11. LENDORMIN [Concomitant]
     Dosage: DAILY DOSE .25 MG
     Route: 048
     Dates: start: 20070914
  12. AVELOX [Suspect]
     Indication: PHARYNGITIS
     Dosage: 400 MG, QD
     Route: 048
     Dates: start: 20111115, end: 20111122
  13. AVELOX [Suspect]
     Indication: UPPER RESPIRATORY TRACT INFLAMMATION
  14. PL (NON-PYRINE COLD PREPARATION) [Suspect]
     Dosage: DAILY DOSE 3 G
     Route: 048
     Dates: start: 20111115, end: 20111122
  15. OLMESARTAN MEDOXOMIL [Concomitant]
     Dosage: DAILY DOSE 10 MG
     Route: 048
     Dates: start: 20070524

REACTIONS (2)
  - HYPONATRAEMIA [None]
  - INAPPROPRIATE ANTIDIURETIC HORMONE SECRETION [None]
